FAERS Safety Report 21008265 (Version 3)
Quarter: 2022Q3

REPORT INFORMATION
  Report Type: Other
  Country: NG (occurrence: None)
  Receive Date: 20220627
  Receipt Date: 20220722
  Transmission Date: 20221027
  Serious: Yes (Death, Hospitalization)
  Sender: FDA-Public Use
  Company Number: NG-ROCHE-3122257

PATIENT
  Age: 56 Year
  Sex: Female
  Weight: 65 kg

DRUGS (3)
  1. AVASTIN [Suspect]
     Active Substance: BEVACIZUMAB
     Indication: Ovarian cancer
     Route: 042
     Dates: start: 20220527
  2. NIFEDIPINE [Concomitant]
     Active Substance: NIFEDIPINE
     Indication: Hypertension
     Route: 048
  3. LABETALOL HYDROCHLORIDE [Concomitant]
     Active Substance: LABETALOL HYDROCHLORIDE
     Indication: Hypertension
     Route: 048

REACTIONS (5)
  - Pain [Recovering/Resolving]
  - Asthenia [Recovering/Resolving]
  - Swelling face [Not Recovered/Not Resolved]
  - Decreased appetite [Recovering/Resolving]
  - Metastatic neoplasm [Fatal]

NARRATIVE: CASE EVENT DATE: 20220603
